FAERS Safety Report 14595517 (Version 2)
Quarter: 2018Q1

REPORT INFORMATION
  Report Type: Report from Study
  Country: None (occurrence: ES)
  Receive Date: 20180302
  Receipt Date: 20180306
  Transmission Date: 20180509
  Serious: Yes (Death, Hospitalization)
  Sender: FDA-Public Use
  Company Number: ES-ABBVIE-17K-144-2086925-00

PATIENT
  Age: 66 Year
  Sex: Female
  Weight: 60 kg

DRUGS (1)
  1. DUODOPA [Suspect]
     Active Substance: CARBIDOPA\LEVODOPA
     Indication: PARKINSON^S DISEASE
     Route: 050
     Dates: start: 20170811

REACTIONS (10)
  - Asthenia [Not Recovered/Not Resolved]
  - Therapeutic response unexpected [Recovering/Resolving]
  - Cardio-respiratory arrest [Fatal]
  - Stoma site infection [Recovering/Resolving]
  - Pre-existing condition improved [Recovered/Resolved]
  - Renal failure [Fatal]
  - Stoma site induration [Recovering/Resolving]
  - Stoma site abscess [Recovering/Resolving]
  - Cardiopulmonary failure [Fatal]
  - Pulmonary oedema [Fatal]

NARRATIVE: CASE EVENT DATE: 2017
